FAERS Safety Report 7250717-9 (Version None)
Quarter: 2011Q1

REPORT INFORMATION
  Report Type: 
  Country: None (occurrence: None)
  Receive Date: 20110128
  Receipt Date: 20110125
  Transmission Date: 20110831
  Serious: Yes (Death)
  Sender: FDA-Public Use
  Company Number: US-AMGEN-USASP2011005183

PATIENT
  Sex: Male

DRUGS (1)
  1. NPLATE [Suspect]
     Indication: PRODUCT USED FOR UNKNOWN INDICATION

REACTIONS (6)
  - IDIOPATHIC THROMBOCYTOPENIC PURPURA [None]
  - SEPTIC SHOCK [None]
  - PULMONARY HAEMORRHAGE [None]
  - PNEUMONIA [None]
  - CARDIO-RESPIRATORY ARREST [None]
  - THROMBOCYTOPENIA [None]
